FAERS Safety Report 9565455 (Version 2)
Quarter: 2016Q1

REPORT INFORMATION
  Report Type: Spontaneous
  Country: CA (occurrence: CA)
  Receive Date: 20130930
  Receipt Date: 20160112
  Transmission Date: 20160526
  Serious: Yes (Other)
  Sender: FDA-Public Use
  Company Number: CA-009507513-1309CAN013684

PATIENT
  Age: 68 Year
  Sex: Male
  Weight: 83.4 kg

DRUGS (11)
  1. NICODERM CQ [Concomitant]
     Active Substance: NICOTINE
     Dosage: 21 MG, QD
     Route: 065
     Dates: start: 20120118
  2. PANTOLOC [Concomitant]
     Active Substance: PANTOPRAZOLE SODIUM
     Dosage: 40 MG, QD
     Route: 048
     Dates: start: 20120124
  3. DECADRON [Concomitant]
     Active Substance: DEXAMETHASONE
     Dosage: 5 MG, QD
     Route: 042
     Dates: start: 20120123, end: 20120127
  4. KYTRIL [Concomitant]
     Active Substance: GRANISETRON HYDROCHLORIDE
     Dosage: 1 MG, QD
     Route: 042
     Dates: start: 20120120, end: 20120128
  5. CYTARABINE. [Suspect]
     Active Substance: CYTARABINE
     Indication: ACUTE MYELOID LEUKAEMIA
     Dosage: 400 MG, Q24H
     Route: 042
     Dates: start: 20120120, end: 20120128
  6. TYLENOL [Concomitant]
     Active Substance: ACETAMINOPHEN
     Dosage: 650 MG, Q4H PRN
     Route: 048
     Dates: start: 20120120
  7. THIAMINE. [Concomitant]
     Active Substance: THIAMINE
     Dosage: 100 MG, QD
     Route: 048
     Dates: start: 20120120, end: 20120122
  8. POSANOL [Suspect]
     Active Substance: POSACONAZOLE
     Indication: ANTIFUNGAL PROPHYLAXIS
     Dosage: 200 MG, TID
     Route: 048
     Dates: start: 20120122, end: 20120125
  9. ZYLOPRIM [Concomitant]
     Active Substance: ALLOPURINOL
     Dosage: 300 MG, BID
     Route: 048
     Dates: start: 20120120
  10. AMPHOGEL [Concomitant]
     Dosage: 600 MG, BID
     Route: 048
     Dates: start: 20120122, end: 20120125
  11. NORVASC [Concomitant]
     Active Substance: AMLODIPINE BESYLATE
     Dosage: 5 MG, QD
     Route: 048
     Dates: start: 20120118, end: 20120127

REACTIONS (1)
  - Blood bilirubin increased [Unknown]

NARRATIVE: CASE EVENT DATE: 20120124
